FAERS Safety Report 8585488-7 (Version None)
Quarter: 2012Q3

REPORT INFORMATION
  Report Type: 
  Country: None (occurrence: None)
  Receive Date: 20120810
  Receipt Date: 20120514
  Transmission Date: 20120928
  Serious: No
  Sender: FDA-Public Use
  Company Number: US-GLAXOSMITHKLINE-A0977515A

PATIENT
  Age: 54 Year
  Sex: Male

DRUGS (4)
  1. ALPRAZOLAM [Concomitant]
  2. BENICAR [Concomitant]
  3. SIMCOR [Concomitant]
  4. REQUIP XL [Suspect]
     Indication: RESTLESS LEGS SYNDROME
     Dosage: 2MG PER DAY
     Route: 048
     Dates: start: 20120201

REACTIONS (1)
  - DRUG INEFFECTIVE [None]
